FAERS Safety Report 10225094 (Version 2)
Quarter: 2014Q2

REPORT INFORMATION
  Report Type: Spontaneous
  Country: IT (occurrence: IT)
  Receive Date: 20140609
  Receipt Date: 20140609
  Transmission Date: 20141212
  Serious: Yes (Hospitalization)
  Sender: FDA-Public Use
  Company Number: IT-WATSON-2013B-03151

PATIENT
  Age: 3 Year
  Sex: Female
  Weight: 15 kg

DRUGS (2)
  1. VANCOMYCIN [Suspect]
     Dosage: 4 MG/KG, DAILY
     Route: 042
     Dates: start: 20130517, end: 20130529
  2. CEFTAZIDIMA ALTER [Concomitant]
     Indication: PRODUCT USED FOR UNKNOWN INDICATION
     Dosage: UNK, UNKNOWN
     Dates: start: 20130517, end: 20130526

REACTIONS (2)
  - Leukopenia [Recovered/Resolved]
  - Hyperpyrexia [Recovered/Resolved]
